FAERS Safety Report 6147207-3 (Version None)
Quarter: 2009Q2

REPORT INFORMATION
  Report Type: 
  Country: None (occurrence: None)
  Receive Date: 20090407
  Receipt Date: 20090309
  Transmission Date: 20091009
  Serious: Yes (Death)
  Sender: FDA-Public Use
  Company Number: US-TYCO HEALTHCARE/MALLINCKRODT-T200900625

PATIENT
  Age: 51 Year
  Sex: Male

DRUGS (4)
  1. METHADOSE [Suspect]
     Indication: FIBROMYALGIA
  2. OXYCONTIN [Concomitant]
     Indication: FIBROMYALGIA
  3. DILAUDID [Concomitant]
     Indication: FIBROMYALGIA
  4. UNSPECIFIED NARCOTICS [Concomitant]
     Indication: FIBROMYALGIA

REACTIONS (1)
  - OVERDOSE [None]
